FAERS Safety Report 8460934-8 (Version None)
Quarter: 2012Q2

REPORT INFORMATION
  Report Type: 
  Country: None (occurrence: None)
  Receive Date: 20120625
  Receipt Date: 20120615
  Transmission Date: 20120825
  Serious: Yes (Hospitalization)
  Sender: FDA-Public Use
  Company Number: US-BIOGENIDEC-2012BI021538

PATIENT
  Age: 39 Year
  Sex: Female

DRUGS (1)
  1. AVONEX [Suspect]
     Indication: MULTIPLE SCLEROSIS
     Route: 030
     Dates: start: 20120208

REACTIONS (9)
  - POST-TRAUMATIC STRESS DISORDER [None]
  - RHEUMATOID ARTHRITIS [None]
  - PAIN [None]
  - INTESTINAL OBSTRUCTION [None]
  - GAIT DISTURBANCE [None]
  - DEPRESSION [None]
  - DYSSTASIA [None]
  - BIPOLAR DISORDER [None]
  - ANXIETY [None]
